FAERS Safety Report 7907121-7 (Version None)
Quarter: 2011Q4

REPORT INFORMATION
  Report Type: 
  Country: None (occurrence: None)
  Receive Date: 20111110
  Receipt Date: 20110531
  Transmission Date: 20120403
  Serious: No
  Sender: FDA-Public Use
  Company Number: US-ASTRAZENECA-2011SE33439

PATIENT
  Sex: Female

DRUGS (1)
  1. LISINOPRIL [Suspect]
     Route: 048
     Dates: start: 20110411

REACTIONS (2)
  - COUGH [None]
  - THROAT IRRITATION [None]
